FAERS Safety Report 14242297 (Version 1)
Quarter: 2017Q4

REPORT INFORMATION
  Report Type: Spontaneous
  Country: US (occurrence: US)
  Receive Date: 20171201
  Receipt Date: 20171201
  Transmission Date: 20180321
  Serious: No
  Sender: FDA-Public Use
  Company Number: US-PFIZER INC-2017510815

PATIENT
  Sex: Male

DRUGS (25)
  1. ATIVAN [Concomitant]
     Active Substance: LORAZEPAM
     Indication: ANXIETY
     Dosage: 1 MG, 2X/DAY
  2. CLONIDINE. [Concomitant]
     Active Substance: CLONIDINE
     Indication: HYPERTENSION
     Dosage: 0.025 MG, AS NEEDED [EVERY 4-6 HOURS]
  3. CRIZOTINIB [Suspect]
     Active Substance: CRIZOTINIB
     Indication: NON-SMALL CELL LUNG CANCER METASTATIC
     Dosage: 250 MG, DAILY
     Dates: start: 201705, end: 201710
  4. MIDODRINE [Concomitant]
     Active Substance: MIDODRINE
     Dosage: 5 MG, 1X/DAY [QAM]
  5. OXYGEN. [Concomitant]
     Active Substance: OXYGEN
     Dosage: 5 L, UNK
  6. DEPAKOTE [Concomitant]
     Active Substance: DIVALPROEX SODIUM
     Dosage: UNK
  7. DIAZEPAM. [Concomitant]
     Active Substance: DIAZEPAM
     Dosage: 2.5 MG, AS NEEDED [PRN]
     Route: 048
  8. MONTELUKAST [Concomitant]
     Active Substance: MONTELUKAST SODIUM
     Dosage: 10 MG, 1X/DAY [NIGHTLY]
  9. TYLENOL [Concomitant]
     Active Substance: ACETAMINOPHEN
     Dosage: UNK, AS NEEDED
  10. LACRILUBE [Concomitant]
     Dosage: UNK
  11. CALCITRIOL. [Concomitant]
     Active Substance: CALCITRIOL
     Dosage: 0.5 UG, DAILY
  12. CALCIUM WITH VITAMIN D [Concomitant]
     Active Substance: CALCIUM\VITAMIN D
     Dosage: 1 DF, DAILY
  13. GEODON [Concomitant]
     Active Substance: ZIPRASIDONE HYDROCHLORIDE\ZIPRASIDONE MESYLATE
     Indication: PSYCHOTIC DISORDER
     Dosage: 20 MG, 1X/DAY [NIGHTLY ]
  14. HEPARIN [Concomitant]
     Active Substance: HEPARIN SODIUM
     Indication: DEEP VEIN THROMBOSIS
     Dosage: 20000 IU, 2X/DAY
  15. LANSOPRAZOLE. [Concomitant]
     Active Substance: LANSOPRAZOLE
     Dosage: 20 MG, 2X/DAY
     Route: 048
  16. REFRESH [Concomitant]
     Active Substance: UNSPECIFIED INGREDIENT
     Dosage: UNK
  17. PYRIDOXINE [Concomitant]
     Active Substance: PYRIDOXINE
     Dosage: 50 MG, 2X/DAY
  18. LEXAPRO [Concomitant]
     Active Substance: ESCITALOPRAM OXALATE
     Dosage: 30 MG, 1X/DAY
     Route: 048
  19. CLONIDINE. [Concomitant]
     Active Substance: CLONIDINE
     Dosage: 0.05 MG, AS NEEDED, [EVERY 4-6 HOURS]
  20. SIROLIMUS. [Concomitant]
     Active Substance: SIROLIMUS
     Dosage: 0.75 MG, 1X/DAY
     Route: 048
  21. ALBUTEROL. [Concomitant]
     Active Substance: ALBUTEROL
     Dosage: UNK, AS NEEDED
  22. CAPTOPRIL. [Concomitant]
     Active Substance: CAPTOPRIL
     Indication: SUPINE HYPERTENSION
     Dosage: 37.5 MG, 1X/DAY [NIGHTLY]
     Route: 048
  23. FLUTICASONE-SALMETEROL [Concomitant]
     Dosage: UNK, 2X/DAY [FLUTICASONE-500MG]\[SALMETEROL-50MCG]INHALE ONE PUFF
     Route: 055
  24. POTASSIUM [Concomitant]
     Active Substance: POTASSIUM
     Dosage: 10 MEQ, DAILY
  25. FOLIC ACID. [Concomitant]
     Active Substance: FOLIC ACID
     Dosage: 1 MG, DAILY

REACTIONS (1)
  - Neoplasm progression [Unknown]
